FAERS Safety Report 18694018 (Version 1)
Quarter: 2020Q4

REPORT INFORMATION
  Report Type: Spontaneous
  Country: US (occurrence: US)
  Receive Date: 20201231
  Receipt Date: 20201231
  Transmission Date: 20210114
  Serious: Yes (Death)
  Sender: FDA-Public Use
  Company Number: None

PATIENT
  Age: 93 Year
  Sex: Female
  Weight: 58.95 kg

DRUGS (1)
  1. BAMLANIVIMAB. [Suspect]
     Active Substance: BAMLANIVIMAB
     Route: 042
     Dates: start: 20201225, end: 20201225

REACTIONS (2)
  - Cerebrovascular accident [None]
  - Sudden death [None]

NARRATIVE: CASE EVENT DATE: 20201225
